FAERS Safety Report 23105792 (Version 1)
Quarter: 2023Q4

REPORT INFORMATION
  Report Type: Spontaneous
  Country: US (occurrence: None)
  Receive Date: 20231024
  Receipt Date: 20231024
  Transmission Date: 20240110
  Serious: Yes (Hospitalization)
  Sender: FDA-Public Use
  Company Number: None

PATIENT
  Age: 78 Year
  Sex: Male
  Weight: 96.1 kg

DRUGS (1)
  1. EMPAGLIFLOZIN [Suspect]
     Active Substance: EMPAGLIFLOZIN
     Dosage: FREQUENCY : DAILY;?
     Route: 048
     Dates: start: 20220511, end: 20220611

REACTIONS (4)
  - Diarrhoea [None]
  - Anal incontinence [None]
  - Urinary incontinence [None]
  - Therapy cessation [None]

NARRATIVE: CASE EVENT DATE: 20220515
